FAERS Safety Report 7494757-3 (Version None)
Quarter: 2011Q2

REPORT INFORMATION
  Report Type: 
  Country: None (occurrence: None)
  Receive Date: 20110520
  Receipt Date: 20110511
  Transmission Date: 20111010
  Serious: Yes (Hospitalization)
  Sender: FDA-Public Use
  Company Number: US-ASTRAZENECA-2008UW25877

PATIENT
  Age: 22184 Day
  Sex: Female

DRUGS (2)
  1. NEXIUM [Suspect]
     Dosage: TWO TIMES A DAY
     Route: 048
  2. NEXIUM [Suspect]
     Indication: GASTROOESOPHAGEAL REFLUX DISEASE
     Dosage: EVERY DAY
     Route: 048
     Dates: start: 20040810

REACTIONS (5)
  - PULMONARY CONGESTION [None]
  - DRUG DOSE OMISSION [None]
  - CHEST PAIN [None]
  - ASTHMA [None]
  - DYSPNOEA [None]
